FAERS Safety Report 8365460-2 (Version None)
Quarter: 2012Q2

REPORT INFORMATION
  Report Type: 
  Country: None (occurrence: None)
  Receive Date: 20120516
  Receipt Date: 20120511
  Transmission Date: 20120825
  Serious: Yes (Hospitalization)
  Sender: FDA-Public Use
  Company Number: US-BAYER-2012-012229

PATIENT
  Age: 22 Year
  Sex: Female
  Weight: 91 kg

DRUGS (2)
  1. YAZ [Suspect]
     Dosage: UNK
     Dates: start: 20030101, end: 20060101
  2. YASMIN [Suspect]
     Dosage: UNK
     Dates: start: 20030101, end: 20060101

REACTIONS (1)
  - CHOLECYSTECTOMY [None]
